FAERS Safety Report 21455021 (Version 2)
Quarter: 2022Q4

REPORT INFORMATION
  Report Type: Spontaneous
  Country: JP (occurrence: None)
  Receive Date: 20221014
  Receipt Date: 20221019
  Transmission Date: 20230113
  Serious: Yes (Other)
  Sender: FDA-Public Use
  Company Number: 2022A340863

PATIENT
  Age: 93 Year
  Sex: Female
  Weight: 50 kg

DRUGS (10)
  1. LOKELMA [Suspect]
     Active Substance: SODIUM ZIRCONIUM CYCLOSILICATE
     Indication: Hyperkalaemia
     Route: 048
     Dates: start: 20220921, end: 20221005
  2. LASIX [Concomitant]
     Active Substance: FUROSEMIDE
     Dosage: DOSE UNKNOWN
     Route: 065
  3. SAMSCA [Concomitant]
     Active Substance: TOLVAPTAN
     Route: 048
  4. EDOXABAN TOSYLATE [Concomitant]
     Active Substance: EDOXABAN TOSYLATE
     Route: 048
  5. ROSUVASTATIN [Concomitant]
     Active Substance: ROSUVASTATIN
     Route: 065
  6. RABEPRAZOLE SODIUM [Concomitant]
     Active Substance: RABEPRAZOLE SODIUM
     Route: 065
  7. RIVOTRIL [Concomitant]
     Active Substance: CLONAZEPAM
     Route: 065
  8. FEBUXOSTAT [Concomitant]
     Active Substance: FEBUXOSTAT
     Route: 065
  9. VADADUSTAT [Concomitant]
     Active Substance: VADADUSTAT
     Route: 065
  10. SODIUM FERROUS CITRATE [Concomitant]
     Active Substance: SODIUM FERROUS CITRATE
     Dosage: DOSE UNKNOWN
     Route: 065

REACTIONS (1)
  - Cardiac failure congestive [Recovered/Resolved]

NARRATIVE: CASE EVENT DATE: 20220925
